FAERS Safety Report 6891850-0 (Version None)
Quarter: 2010Q3

REPORT INFORMATION
  Report Type: 
  Country: None (occurrence: None)
  Receive Date: 20100731
  Receipt Date: 20071023
  Transmission Date: 20110219
  Serious: No
  Sender: FDA-Public Use
  Company Number: US-PFIZER INC-2007089103

PATIENT
  Sex: Male
  Weight: 77.11 kg

DRUGS (2)
  1. NORVASC [Suspect]
     Indication: HYPERTENSION
  2. LIPITOR [Suspect]
     Indication: BLOOD CHOLESTEROL INCREASED
     Dosage: 10MG QD EVERY DAY TDD:10MG

REACTIONS (3)
  - BODY HEIGHT DECREASED [None]
  - DIZZINESS [None]
  - HYPOTENSION [None]
